FAERS Safety Report 9983034 (Version 2)
Quarter: 2014Q2

REPORT INFORMATION
  Report Type: Report from Study
  Country: US (occurrence: US)
  Receive Date: 20140307
  Receipt Date: 20140506
  Transmission Date: 20141212
  Serious: Yes (Other)
  Sender: FDA-Public Use
  Company Number: US-ABBVIE-13P-163-1177108-00

PATIENT
  Sex: Female

DRUGS (7)
  1. HUMIRA [Suspect]
     Indication: CROHN^S DISEASE
     Dates: start: 20131004, end: 20131004
  2. HUMIRA [Suspect]
  3. HUMIRA [Suspect]
     Dates: end: 20131203
  4. PREDNISONE [Suspect]
     Indication: PUSTULAR PSORIASIS
  5. PREDNISONE [Suspect]
     Indication: PUSTULAR PSORIASIS
  6. DEPO-PROVERA [Concomitant]
     Indication: CONTRACEPTION
  7. ALBUTEROL INHALER [Concomitant]
     Indication: ASTHMA

REACTIONS (3)
  - Systemic lupus erythematosus [Not Recovered/Not Resolved]
  - Pustular psoriasis [Not Recovered/Not Resolved]
  - Alopecia [Not Recovered/Not Resolved]
